FAERS Safety Report 9316702 (Version 1)
Quarter: 2013Q2

REPORT INFORMATION
  Report Type: Spontaneous
  Country: US (occurrence: None)
  Receive Date: 20130528
  Receipt Date: 20130528
  Transmission Date: 20140414
  Serious: Yes (Life-Threatening, Hospitalization)
  Sender: FDA-Public Use
  Company Number: None

PATIENT
  Age: 16 Year
  Sex: Female
  Weight: 58.06 kg

DRUGS (2)
  1. DAYTRANA [Suspect]
     Indication: ATTENTION DEFICIT/HYPERACTIVITY DISORDER
     Dosage: PATCH
     Route: 062
     Dates: start: 20130501, end: 20130510
  2. PROZAC [Concomitant]

REACTIONS (3)
  - Suicidal ideation [None]
  - Suicide attempt [None]
  - Overdose [None]
